FAERS Safety Report 14100835 (Version 1)
Quarter: 2017Q4

REPORT INFORMATION
  Report Type: Spontaneous
  Country: US (occurrence: None)
  Receive Date: 20171017
  Receipt Date: 20171017
  Transmission Date: 20180321
  Serious: Yes (Hospitalization)
  Sender: FDA-Public Use
  Company Number: None

PATIENT
  Sex: Female
  Weight: 89.81 kg

DRUGS (1)
  1. ENOXAPARIN SODIUM. [Suspect]
     Active Substance: ENOXAPARIN SODIUM
     Route: 058
     Dates: start: 201707

REACTIONS (6)
  - Thrombosis [None]
  - Depression [None]
  - Peripheral swelling [None]
  - Contusion [None]
  - Pain [None]
  - Swelling [None]

NARRATIVE: CASE EVENT DATE: 2017
